FAERS Safety Report 13230754 (Version 1)
Quarter: 2017Q1

REPORT INFORMATION
  Report Type: Spontaneous
  Country: US (occurrence: US)
  Receive Date: 20170214
  Receipt Date: 20170214
  Transmission Date: 20170428
  Serious: Yes (Other)
  Sender: FDA-Public Use
  Company Number: None

PATIENT
  Age: 48 Year
  Sex: Female
  Weight: 65.83 kg

DRUGS (2)
  1. 5FU [Suspect]
     Active Substance: FLUOROURACIL
  2. KENALOG [Suspect]
     Active Substance: TRIAMCINOLONE ACETONIDE

REACTIONS (2)
  - Injection site reaction [None]
  - Chemical injury [None]

NARRATIVE: CASE EVENT DATE: 20150305
